FAERS Safety Report 6233631-7 (Version None)
Quarter: 2009Q2

REPORT INFORMATION
  Report Type: 
  Country: None (occurrence: None)
  Receive Date: 20090617
  Receipt Date: 20090611
  Transmission Date: 20091009
  Serious: Yes (Hospitalization)
  Sender: FDA-Public Use
  Company Number: US-ABBOTT-08P-163-0478659-00

PATIENT
  Sex: Male
  Weight: 78.542 kg

DRUGS (22)
  1. HUMIRA [Suspect]
     Indication: CROHN'S DISEASE
     Route: 058
     Dates: start: 20080703
  2. HUMIRA [Suspect]
     Dates: end: 20090604
  3. PREDNISONE [Concomitant]
     Indication: CROHN'S DISEASE
     Route: 048
     Dates: start: 20070704
  4. LIBRAX [Concomitant]
     Indication: CROHN'S DISEASE
     Route: 048
  5. LOMOTIL [Concomitant]
     Indication: CROHN'S DISEASE
     Route: 048
  6. VITAMIN B-12 [Concomitant]
     Indication: VITAMIN SUPPLEMENTATION
     Route: 030
  7. GLIPIZIDE [Concomitant]
     Indication: DIABETES MELLITUS
     Route: 048
     Dates: start: 20060101
  8. GEMFIBROZIL [Concomitant]
     Indication: BLOOD TRIGLYCERIDES
     Route: 048
     Dates: start: 20050101
  9. LISINOPRIL [Concomitant]
     Indication: BLOOD PRESSURE
     Route: 048
     Dates: start: 20050101
  10. MIRTAZAPINE [Concomitant]
     Indication: DEPRESSION
     Dosage: 30 MILLIGRAMS AM 15 MILLIGRAMS AT NIGHT
     Route: 048
     Dates: start: 20060101
  11. ABILIFY [Concomitant]
     Indication: DEPRESSION
     Route: 048
     Dates: start: 20060101
  12. TIMOLOL MALEATE [Concomitant]
     Indication: BORDERLINE GLAUCOMA
     Dosage: 0.5%
     Dates: start: 20080401
  13. TIMOLOL MALEATE [Concomitant]
     Indication: INTRAOCULAR PRESSURE INCREASED
  14. PRILOSEC [Concomitant]
     Indication: GASTRIC DISORDER
     Route: 048
     Dates: start: 20070101
  15. ASPIRIN [Concomitant]
     Indication: DRUG USE FOR UNKNOWN INDICATION
     Route: 048
  16. CALCIUM CITRATE [Concomitant]
     Indication: MINERAL SUPPLEMENTATION
     Route: 048
  17. PROBIOTIC [Concomitant]
     Indication: CROHN'S DISEASE
  18. LORAZEPAM [Concomitant]
     Indication: INSOMNIA
  19. LOVAZA [Concomitant]
     Indication: MEDICAL DIET
     Route: 048
  20. LOMICTAL [Concomitant]
     Indication: DEPRESSION
  21. ZOCOR [Concomitant]
     Indication: BLOOD TRIGLYCERIDES INCREASED
     Route: 048
  22. TYLENOL (CAPLET) [Concomitant]
     Indication: ARTHRALGIA
     Route: 048

REACTIONS (5)
  - ABDOMINAL ADHESIONS [None]
  - ABDOMINAL PAIN [None]
  - DIARRHOEA [None]
  - DRUG INEFFECTIVE [None]
  - FLATULENCE [None]
